FAERS Safety Report 4380371-5 (Version None)
Quarter: 2004Q2

REPORT INFORMATION
  Report Type: 
  Country: None (occurrence: None)
  Receive Date: 20040614
  Receipt Date: 20040505
  Transmission Date: 20050107
  Serious: Yes (Hospitalization)
  Sender: FDA-Public Use
  Company Number: 2004030308

PATIENT
  Age: 28 Month
  Sex: Female

DRUGS (1)
  1. ZITHROMAX [Suspect]
     Indication: PHARYNGITIS
     Dosage: 100 MG ( 1 IN 1 D), ORAL
     Route: 048
     Dates: start: 20040414, end: 20030414

REACTIONS (1)
  - REYE'S SYNDROME [None]
